FAERS Safety Report 16548531 (Version 1)
Quarter: 2019Q3

REPORT INFORMATION
  Report Type: Spontaneous
  Country: US (occurrence: US)
  Receive Date: 20190709
  Receipt Date: 20190709
  Transmission Date: 20191004
  Serious: No
  Sender: FDA-Public Use
  Company Number: US-TEVA-2019-US-1070454

PATIENT
  Age: 9 Year
  Sex: Female

DRUGS (2)
  1. DESMOPRESSIN [Suspect]
     Active Substance: DESMOPRESSIN
     Indication: DIABETES INSIPIDUS
     Route: 065
  2. TRAMETINIB [Interacting]
     Active Substance: TRAMETINIB
     Indication: OPTIC GLIOMA
     Route: 065

REACTIONS (2)
  - Drug interaction [Unknown]
  - Therapeutic product effect prolonged [Unknown]
